FAERS Safety Report 10222839 (Version 2)
Quarter: 2014Q2

REPORT INFORMATION
  Report Type: Spontaneous
  Country: DE (occurrence: DE)
  Receive Date: 20140606
  Receipt Date: 20140623
  Transmission Date: 20141212
  Serious: Yes (Hospitalization)
  Sender: FDA-Public Use
  Company Number: DE-CELGENEUS-062-POMAL-14054872

PATIENT
  Age: 67 Year
  Sex: Male
  Weight: 80 kg

DRUGS (9)
  1. IMNOVID [Suspect]
     Indication: PLASMA CELL MYELOMA
     Dosage: 4 MILLIGRAM
     Route: 048
     Dates: start: 20140327, end: 20140409
  2. DEXAMETHASONE [Concomitant]
     Indication: PLASMA CELL MYELOMA
     Dosage: 20 MILLIGRAM
     Route: 048
     Dates: start: 20140327, end: 20140409
  3. DEXAMETHASONE [Concomitant]
     Route: 065
     Dates: start: 2009, end: 2009
  4. COTRIMOXAZOLE [Concomitant]
     Indication: PROPHYLAXIS
     Dosage: FRIDAY AND SATURDAY
     Route: 048
  5. VORICONAZOLE [Concomitant]
     Indication: FUNGAL INFECTION
     Dosage: 400 MILLIGRAM
     Route: 048
     Dates: start: 20140312
  6. ACICLOVIR [Concomitant]
     Indication: PROPHYLAXIS
     Dosage: 1200 MILLIGRAM
     Route: 048
     Dates: start: 20140312
  7. PANTOPRAZOLE [Concomitant]
     Indication: PROPHYLAXIS
     Dosage: 40 MILLIGRAM
     Route: 048
     Dates: start: 20140312
  8. METOPROLOL SUCCINATE [Concomitant]
     Indication: HYPERTENSION
     Dosage: 95 MILLIGRAM
     Route: 048
     Dates: start: 20140312
  9. METOPROLOL SUCCINATE [Concomitant]
     Indication: SINUS TACHYCARDIA
     Route: 065

REACTIONS (1)
  - Myositis [Recovered/Resolved]
